FAERS Safety Report 10402869 (Version 1)
Quarter: 2014Q3

REPORT INFORMATION
  Report Type: Spontaneous
  Country: US (occurrence: None)
  Receive Date: 20140821
  Receipt Date: 20140821
  Transmission Date: 20150326
  Serious: No
  Sender: FDA-Public Use
  Company Number: None

PATIENT
  Age: 54 Year
  Sex: Male

DRUGS (1)
  1. SOVALDI [Suspect]
     Active Substance: SOFOSBUVIR
     Indication: HEPATITIS C
     Dosage: TAKE ONE TABLET QD ORAL
     Route: 048

REACTIONS (1)
  - Musculoskeletal chest pain [None]

NARRATIVE: CASE EVENT DATE: 20140805
